FAERS Safety Report 20629619 (Version 1)
Quarter: 2022Q1

REPORT INFORMATION
  Report Type: Spontaneous
  Country: US (occurrence: None)
  Receive Date: 20220323
  Receipt Date: 20220323
  Transmission Date: 20220423
  Serious: Yes (Other)
  Sender: FDA-Public Use
  Company Number: 2022A118951

PATIENT
  Sex: Female
  Weight: 52.2 kg

DRUGS (2)
  1. CRESTOR [Suspect]
     Active Substance: ROSUVASTATIN CALCIUM
     Indication: Blood cholesterol increased
     Route: 048
  2. LOSARTAN [Concomitant]
     Active Substance: LOSARTAN
     Route: 065

REACTIONS (9)
  - Angioedema [Unknown]
  - Blood cholesterol abnormal [Not Recovered/Not Resolved]
  - Burning mouth syndrome [Unknown]
  - Dry eye [Unknown]
  - Antinuclear antibody positive [Unknown]
  - Sensitive skin [Unknown]
  - Pruritus [Not Recovered/Not Resolved]
  - Rash [Unknown]
  - Rash macular [Unknown]
